FAERS Safety Report 13153855 (Version 5)
Quarter: 2018Q3

REPORT INFORMATION
  Report Type: Spontaneous
  Country: BR (occurrence: BR)
  Receive Date: 20170126
  Receipt Date: 20180827
  Transmission Date: 20181010
  Serious: Yes (Other)
  Sender: FDA-Public Use
  Company Number: BR-ROCHE-1884325

PATIENT
  Age: 61 Year
  Sex: Female
  Weight: 60 kg

DRUGS (3)
  1. XELODA [Suspect]
     Active Substance: CAPECITABINE
     Indication: METASTASES TO BONE
  2. PACLITAXEL. [Concomitant]
     Active Substance: PACLITAXEL
     Route: 065
     Dates: start: 201608, end: 201611
  3. XELODA [Suspect]
     Active Substance: CAPECITABINE
     Indication: BREAST CANCER
     Route: 048
     Dates: start: 20161212, end: 20170204

REACTIONS (12)
  - Skin discolouration [Unknown]
  - Genital injury [Unknown]
  - Anal injury [Unknown]
  - Vulvovaginal discomfort [Not Recovered/Not Resolved]
  - Colitis [Unknown]
  - Vulvovaginal injury [Recovered/Resolved]
  - Tongue exfoliation [Recovered/Resolved]
  - Tongue discolouration [Recovered/Resolved]
  - Proctalgia [Not Recovered/Not Resolved]
  - Drug ineffective [Unknown]
  - Skin exfoliation [Unknown]
  - Pain [Unknown]

NARRATIVE: CASE EVENT DATE: 201701
